FAERS Safety Report 13769361 (Version 1)
Quarter: 2017Q3

REPORT INFORMATION
  Report Type: Spontaneous
  Country: IN (occurrence: IN)
  Receive Date: 20170719
  Receipt Date: 20170719
  Transmission Date: 20171127
  Serious: Yes (Other)
  Sender: FDA-Public Use
  Company Number: IN-IMPAX LABORATORIES, INC-2017-IPXL-02075

PATIENT
  Age: 29 Year
  Sex: Female

DRUGS (5)
  1. AZATHIOPRINE. [Suspect]
     Active Substance: AZATHIOPRINE
     Indication: SEGMENTED HYALINISING VASCULITIS
     Dosage: 100-150, DAILY
     Route: 065
  2. PENTOXIFILLINE [Suspect]
     Active Substance: PENTOXIFYLLINE
     Indication: SEGMENTED HYALINISING VASCULITIS
     Dosage: 1200 MG, DAILY
     Route: 065
  3. ASPIRIN. [Suspect]
     Active Substance: ASPIRIN
     Indication: SEGMENTED HYALINISING VASCULITIS
     Dosage: 75-150 MG, DAILY
     Route: 065
  4. CORTICOSTEROIDS [Suspect]
     Active Substance: CORTICOSTEROID NOS
     Indication: SEGMENTED HYALINISING VASCULITIS
     Dosage: 10-40 MG/DAY VAIABLE DOSING
  5. CYCLOSPORINE. [Suspect]
     Active Substance: CYCLOSPORINE
     Indication: SEGMENTED HYALINISING VASCULITIS
     Dosage: 100-200 MG, DAILY
     Route: 065

REACTIONS (4)
  - Hypertension [Unknown]
  - Drug effect incomplete [Unknown]
  - Diabetes mellitus [Unknown]
  - Cushingoid [Unknown]
